FAERS Safety Report 4716457-2 (Version None)
Quarter: 2005Q3

REPORT INFORMATION
  Report Type: 
  Country: None (occurrence: None)
  Receive Date: 20050713
  Receipt Date: 20050627
  Transmission Date: 20060218
  Serious: Yes (Hospitalization)
  Sender: FDA-Public Use
  Company Number: 2005PL000052

PATIENT
  Age: 62 Year
  Sex: Male

DRUGS (1)
  1. ALLOPURINOL [Suspect]
     Indication: HYPERURICAEMIA
     Dosage: 600 MG;QD;PO
     Route: 048

REACTIONS (21)
  - ALANINE AMINOTRANSFERASE INCREASED [None]
  - ASPARTATE AMINOTRANSFERASE INCREASED [None]
  - AZOTAEMIA [None]
  - DRUG HYPERSENSITIVITY [None]
  - EOSINOPHILIA [None]
  - ERYTHEMA [None]
  - ERYTHEMA MULTIFORME [None]
  - HAEMODIALYSIS [None]
  - HEPATIC FUNCTION ABNORMAL [None]
  - LEUKOCYTOSIS [None]
  - PROTEINURIA [None]
  - PYREXIA [None]
  - PYURIA [None]
  - RASH GENERALISED [None]
  - RASH MACULAR [None]
  - RENAL ATROPHY [None]
  - RENAL DISORDER [None]
  - RENAL FAILURE ACUTE [None]
  - SWELLING FACE [None]
  - URINARY TRACT INFECTION [None]
  - URTICARIA [None]
